FAERS Safety Report 13527709 (Version 4)
Quarter: 2021Q4

REPORT INFORMATION
  Report Type: Report from Study
  Country: US (occurrence: US)
  Receive Date: 20170509
  Receipt Date: 20211110
  Transmission Date: 20220303
  Serious: Yes (Hospitalization, Other)
  Sender: FDA-Public Use
  Company Number: US-VIFOR (INTERNATIONAL) INC.-VIT-2017-05053

PATIENT
  Age: 77 Year
  Sex: Female
  Weight: 87 kg

DRUGS (1)
  1. VELTASSA [Suspect]
     Active Substance: PATIROMER
     Indication: Hyperkalaemia
     Dosage: ON 3RD MONTH
     Route: 048
     Dates: start: 20170224

REACTIONS (9)
  - Illness [Unknown]
  - Fatigue [Unknown]
  - Urinary tract infection [Unknown]
  - Renal failure [Unknown]
  - Urinary retention [Unknown]
  - Kidney infection [Unknown]
  - Neoplasm malignant [Unknown]
  - Recurrent cancer [Unknown]
  - Product dose omission issue [Unknown]

NARRATIVE: CASE EVENT DATE: 20170401
